FAERS Safety Report 25044551 (Version 1)
Quarter: 2025Q1

REPORT INFORMATION
  Report Type: Spontaneous
  Country: RU (occurrence: RU)
  Receive Date: 20250306
  Receipt Date: 20250306
  Transmission Date: 20250409
  Serious: Yes (Other)
  Sender: CHEPLAPHARM
  Company Number: RU-ELI_LILLY_AND_COMPANY-RU202502017448

PATIENT
  Age: 53 Year
  Sex: Female

DRUGS (12)
  1. CAPECITABINE [Suspect]
     Active Substance: CAPECITABINE
     Indication: HER2 negative breast cancer
     Dates: start: 201901, end: 201904
  2. GEMZAR [Suspect]
     Active Substance: GEMCITABINE HYDROCHLORIDE
     Indication: Triple negative breast cancer
     Dates: start: 2019
  3. CARBOPLATIN [Suspect]
     Active Substance: CARBOPLATIN
     Indication: Triple negative breast cancer
     Dates: start: 201708, end: 201711
  4. CARBOPLATIN [Suspect]
     Active Substance: CARBOPLATIN
     Indication: HER2 negative breast cancer
     Dates: start: 201708, end: 201711
  5. CARBOPLATIN [Suspect]
     Active Substance: CARBOPLATIN
     Indication: Triple negative breast cancer
     Dates: start: 2019
  6. CARBOPLATIN [Suspect]
     Active Substance: CARBOPLATIN
     Indication: HER2 negative breast cancer
     Dates: start: 2019
  7. DOCETAXEL [Suspect]
     Active Substance: DOCETAXEL
     Indication: HER2 negative breast cancer
     Dates: start: 201708, end: 201711
  8. ERIBULIN [Suspect]
     Active Substance: ERIBULIN
     Indication: HER2 negative breast cancer
     Dates: start: 201906, end: 201911
  9. BEVACIZUMAB [Suspect]
     Active Substance: BEVACIZUMAB
     Indication: Triple negative breast cancer
     Dosage: 7.5 MG/KG, DAILY
     Route: 042
     Dates: start: 2019
  10. BEVACIZUMAB [Suspect]
     Active Substance: BEVACIZUMAB
     Indication: Triple negative breast cancer
     Dosage: 15 MG/KG, DAILY
     Route: 042
     Dates: start: 202209
  11. CISPLATIN [Suspect]
     Active Substance: CISPLATIN
     Indication: Triple negative breast cancer
     Dates: start: 202008, end: 202107
  12. IRINOTECAN [Suspect]
     Active Substance: IRINOTECAN
     Indication: Triple negative breast cancer
     Dates: start: 20220719, end: 202209

REACTIONS (4)
  - Hemiparesis [Recovering/Resolving]
  - Epilepsy [Recovering/Resolving]
  - Malignant neoplasm progression [Recovering/Resolving]
  - Neuropathy peripheral [Recovering/Resolving]
